FAERS Safety Report 6078216-0 (Version None)
Quarter: 2009Q1

REPORT INFORMATION
  Report Type: 
  Country: None (occurrence: None)
  Receive Date: 20090213
  Receipt Date: 20090203
  Transmission Date: 20090719
  Serious: Yes (Other)
  Sender: FDA-Public Use
  Company Number: US-ELI_LILLY_AND_COMPANY-US200901004168

PATIENT
  Sex: Male

DRUGS (3)
  1. CYMBALTA [Suspect]
     Dosage: 60 MG, UNKNOWN
     Dates: start: 20081016, end: 20081130
  2. MS CONTIN [Concomitant]
     Indication: PAIN
     Dosage: 160 MG, UNKNOWN
  3. FENTANYL [Concomitant]
     Indication: PAIN
     Dosage: 150 UG, UNKNOWN

REACTIONS (1)
  - BLINDNESS [None]
